FAERS Safety Report 8395956-9 (Version None)
Quarter: 2012Q2

REPORT INFORMATION
  Report Type: 
  Country: None (occurrence: None)
  Receive Date: 20120529
  Receipt Date: 20120529
  Transmission Date: 20120825
  Serious: Yes (Other)
  Sender: FDA-Public Use
  Company Number: None

PATIENT
  Age: 37 Year
  Sex: Female
  Weight: 68.0396 kg

DRUGS (1)
  1. CIPROFLOXACIN HCL [Suspect]
     Indication: ESCHERICHIA INFECTION
     Dosage: 500MG 2X DAY PO
     Route: 048
     Dates: start: 20120501

REACTIONS (4)
  - ASTHENIA [None]
  - BALANCE DISORDER [None]
  - PARAESTHESIA [None]
  - HYPOAESTHESIA [None]
